FAERS Safety Report 5245043-3 (Version None)
Quarter: 2007Q1

REPORT INFORMATION
  Report Type: 
  Country: None (occurrence: None)
  Receive Date: 20070223
  Receipt Date: 20070131
  Transmission Date: 20070707
  Serious: Yes (Other)
  Sender: FDA-Public Use
  Company Number: US-BAYER-200711070GDS

PATIENT
  Age: 74 Year
  Sex: Male

DRUGS (1)
  1. NEXAVAR [Suspect]
     Indication: LUNG CANCER METASTATIC
     Dosage: TOTAL DAILY DOSE: 800 MG
     Route: 065

REACTIONS (1)
  - KERATOACANTHOMA [None]
